FAERS Safety Report 19799551 (Version 3)
Quarter: 2021Q4

REPORT INFORMATION
  Report Type: Spontaneous
  Country: PL (occurrence: PL)
  Receive Date: 20210907
  Receipt Date: 20211005
  Transmission Date: 20220303
  Serious: Yes (Hospitalization, Other)
  Sender: FDA-Public Use
  Company Number: PL-002147023-NVSC2021PL064846

PATIENT
  Age: 70 Year
  Sex: Male

DRUGS (19)
  1. PANTOPRAZOLE [Suspect]
     Active Substance: PANTOPRAZOLE
     Indication: Product used for unknown indication
     Dosage: 1 DOSAGE FORM, QD(1 DF, QD (20))
     Route: 065
  2. METOPROLOL [Suspect]
     Active Substance: METOPROLOL
     Indication: Product used for unknown indication
     Dosage: 2 DOSAGE FORM, QD(2 DF, QD)
     Route: 065
  3. TORSEMIDE [Suspect]
     Active Substance: TORSEMIDE
     Indication: Product used for unknown indication
     Dosage: 1 DOSAGE FORM, QD(1 DF, QD)
     Route: 065
  4. RAMIPRIL [Suspect]
     Active Substance: RAMIPRIL
     Indication: Product used for unknown indication
     Dosage: 1 DOSAGE FORM, QD
     Route: 065
  5. RAMIPRIL [Suspect]
     Active Substance: RAMIPRIL
     Dosage: 2 DOSAGE FORM, 12 HOURS
     Route: 065
  6. RAMIPRIL [Suspect]
     Active Substance: RAMIPRIL
     Dosage: 2 DOSAGE FORM, QD (2 DF, QD)
     Route: 065
  7. RIVAROXABAN [Suspect]
     Active Substance: RIVAROXABAN
     Indication: Product used for unknown indication
     Dosage: 20 MILLIGRAM, QD
     Route: 065
  8. RIVAROXABAN [Suspect]
     Active Substance: RIVAROXABAN
     Dosage: 15 MILLIGRAM, QD
     Route: 065
  9. RIVAROXABAN [Suspect]
     Active Substance: RIVAROXABAN
     Dosage: 1 DOSAGE FORM(1 DF, QD (STRENGTH 15 MG))
     Route: 065
  10. RIVAROXABAN [Suspect]
     Active Substance: RIVAROXABAN
     Dosage: 1 DOSAGE FORM(1 DF, QD (STRENGTH 20 MG))
     Route: 065
  11. SACUBITRIL\VALSARTAN [Suspect]
     Active Substance: SACUBITRIL\VALSARTAN
     Indication: Product used for unknown indication
     Dosage: 1 DOSAGE FORM, 12 HOUR 49/ 51MG 2 X1 TAB
     Route: 065
  12. SACUBITRIL\VALSARTAN [Suspect]
     Active Substance: SACUBITRIL\VALSARTAN
     Dosage: 1 DOSAGE FORM, 12 HOUR, 97/ 103 MG, 2 X1 TAB
     Route: 065
  13. ALLOPURINOL [Suspect]
     Active Substance: ALLOPURINOL
     Indication: Product used for unknown indication
     Dosage: 1 DF, QD (300 MG)
     Route: 065
  14. ALLOPURINOL [Suspect]
     Active Substance: ALLOPURINOL
     Dosage: 2 DF, QD (100 MG)
     Route: 065
  15. DAPAGLIFLOZIN [Concomitant]
     Active Substance: DAPAGLIFLOZIN
     Indication: Product used for unknown indication
     Dosage: 1 DOSAGE FORM, QD(1 DF, QD)
     Route: 065
  16. KARVEDILOL ACTAVIS [Concomitant]
     Indication: Product used for unknown indication
     Dosage: 2 DOSAGE FORM, QD(2 DF, QD)
     Route: 065
  17. EPLERENONE [Concomitant]
     Active Substance: EPLERENONE
     Indication: Product used for unknown indication
     Dosage: 1 DOSAGE FORM, QD(1 DF, QD)
     Route: 065
  18. FINASTERIDE [Concomitant]
     Active Substance: FINASTERIDE
     Indication: Product used for unknown indication
     Dosage: 1 DOSAGE FORM, QD(1 DF, QD)
     Route: 065
  19. POTASSIUM CHLORIDE [Concomitant]
     Active Substance: POTASSIUM CHLORIDE
     Indication: Product used for unknown indication
     Dosage: 1 DOSAGE FORM, QD(1 DF, QD)
     Route: 065

REACTIONS (9)
  - Renal atrophy [Unknown]
  - Urosepsis [Unknown]
  - COVID-19 pneumonia [Unknown]
  - Cardiac failure chronic [Unknown]
  - Hypertrophy [Unknown]
  - N-terminal prohormone brain natriuretic peptide abnormal [Unknown]
  - Glomerular filtration rate abnormal [Unknown]
  - Blood pressure decreased [Unknown]
  - Dyspnoea exertional [Unknown]
